FAERS Safety Report 9097011 (Version 1)
Quarter: 2013Q1

REPORT INFORMATION
  Report Type: Spontaneous
  Country: AT (occurrence: None)
  Receive Date: 20130123
  Receipt Date: 20130123
  Transmission Date: 20140127
  Serious: Yes (Other)
  Sender: FDA-Public Use
  Company Number: PD 179

PATIENT
  Age: 41 Year
  Sex: Female

DRUGS (1)
  1. LEVETIRACETAM [Suspect]
     Dosage: 500MKG/DAY INITIALLY OVER 2 WEEKS TO 1000MG/DAY, WITH OPTION TO INCREASE TO A MAXIMUM 3000/MG DAY IF NECESSARY
     Route: 048

REACTIONS (3)
  - Convulsion [None]
  - Epilepsy [None]
  - Grand mal convulsion [None]
